FAERS Safety Report 18104525 (Version 3)
Quarter: 2022Q1

REPORT INFORMATION
  Report Type: Report from Study
  Country: US (occurrence: US)
  Receive Date: 20200803
  Receipt Date: 20220303
  Transmission Date: 20220424
  Serious: Yes (Hospitalization)
  Sender: FDA-Public Use
  Company Number: US-SHIRE-US202024806

PATIENT
  Age: 3 Year
  Sex: Female

DRUGS (20)
  1. TEDUGLUTIDE [Suspect]
     Active Substance: TEDUGLUTIDE
     Indication: Short-bowel syndrome
     Dosage: 0.5 MILLIGRAM, QD
     Route: 058
  2. TEDUGLUTIDE [Suspect]
     Active Substance: TEDUGLUTIDE
     Indication: Short-bowel syndrome
     Dosage: 0.5 MILLIGRAM, QD
     Route: 058
  3. TEDUGLUTIDE [Suspect]
     Active Substance: TEDUGLUTIDE
     Indication: Short-bowel syndrome
     Dosage: 0.5 MILLIGRAM, QD
     Route: 058
  4. TEDUGLUTIDE [Suspect]
     Active Substance: TEDUGLUTIDE
     Indication: Short-bowel syndrome
     Dosage: 0.5 MILLIGRAM, QD
     Route: 058
  5. TEDUGLUTIDE [Suspect]
     Active Substance: TEDUGLUTIDE
     Indication: Congenital small intestinal atresia
     Dosage: 0.07 MILLILITER, QD
     Route: 058
  6. TEDUGLUTIDE [Suspect]
     Active Substance: TEDUGLUTIDE
     Indication: Congenital small intestinal atresia
     Dosage: 0.07 MILLILITER, QD
     Route: 058
  7. TEDUGLUTIDE [Suspect]
     Active Substance: TEDUGLUTIDE
     Indication: Congenital small intestinal atresia
     Dosage: 0.07 MILLILITER, QD
     Route: 058
  8. TEDUGLUTIDE [Suspect]
     Active Substance: TEDUGLUTIDE
     Indication: Congenital small intestinal atresia
     Dosage: 0.07 MILLILITER, QD
     Route: 058
  9. TEDUGLUTIDE [Suspect]
     Active Substance: TEDUGLUTIDE
     Indication: Jejunal stenosis
  10. TEDUGLUTIDE [Suspect]
     Active Substance: TEDUGLUTIDE
     Indication: Jejunal stenosis
  11. TEDUGLUTIDE [Suspect]
     Active Substance: TEDUGLUTIDE
     Indication: Jejunal stenosis
  12. TEDUGLUTIDE [Suspect]
     Active Substance: TEDUGLUTIDE
     Indication: Jejunal stenosis
  13. IRON [Concomitant]
     Active Substance: IRON
     Indication: Product used for unknown indication
     Dosage: 45 MILLIGRAM
     Route: 065
  14. RIFAXIMIN ABC [Concomitant]
  15. LOPERAMIDE [Concomitant]
     Active Substance: LOPERAMIDE
  16. VITAMINS [Concomitant]
     Active Substance: VITAMINS
  17. NEOMYCIN SULFATE [Concomitant]
     Active Substance: NEOMYCIN SULFATE
  18. VITAMIN D [Concomitant]
     Active Substance: VITAMIN D NOS
  19. FAMOTIDINE [Concomitant]
     Active Substance: FAMOTIDINE
  20. RIFAXIMIN [Concomitant]
     Active Substance: RIFAXIMIN

REACTIONS (6)
  - Pyrexia [Unknown]
  - White blood cell count decreased [Unknown]
  - Platelet count decreased [Unknown]
  - Weight increased [Unknown]
  - Product use issue [Unknown]
  - Growth accelerated [Unknown]

NARRATIVE: CASE EVENT DATE: 20210909
